FAERS Safety Report 7639771-X (Version None)
Quarter: 2011Q3

REPORT INFORMATION
  Report Type: 
  Country: None (occurrence: None)
  Receive Date: 20110727
  Receipt Date: 20110714
  Transmission Date: 20111222
  Serious: Yes (Hospitalization)
  Sender: FDA-Public Use
  Company Number: PHHY2011US63919

PATIENT
  Sex: Male

DRUGS (11)
  1. FOLIC ACID [Concomitant]
     Dosage: UNK UKN, UNK
  2. LIPITOR [Concomitant]
     Dosage: UNK UKN, UNK
  3. FUROSEMIDE [Concomitant]
     Dosage: UNK UKN, UNK
  4. MONONITRAT [Concomitant]
     Dosage: UNK UKN, UNK
  5. OMEPRAZOLE [Concomitant]
     Dosage: UNK UKN, UNK
  6. ASPIRIN [Concomitant]
     Dosage: UNK UKN, UNK
  7. GABAPENTIN [Concomitant]
     Dosage: UNK UKN, UNK
  8. GLEEVEC [Suspect]
     Indication: CHRONIC MYELOID LEUKAEMIA
     Dosage: 200 MG, DAILY
     Route: 048
     Dates: start: 20100101
  9. PLAVIX [Concomitant]
     Dosage: UNK UKN, UNK
  10. METOPROLOL SUCCINATE [Concomitant]
     Dosage: UNK UKN, UNK
  11. ISOSORBIDE DINITRATE [Concomitant]
     Dosage: UNK UKN, UNK

REACTIONS (4)
  - HAEMATOCHEZIA [None]
  - MYOCARDIAL INFARCTION [None]
  - PNEUMONIA [None]
  - DIVERTICULITIS [None]
